FAERS Safety Report 25870138 (Version 1)
Quarter: 2025Q4

REPORT INFORMATION
  Report Type: Spontaneous
  Country: GB (occurrence: GB)
  Receive Date: 20251001
  Receipt Date: 20251001
  Transmission Date: 20260117
  Serious: Yes (Other)
  Sender: PFIZER
  Company Number: None

PATIENT
  Age: 40 Year
  Sex: Female
  Weight: 65 kg

DRUGS (4)
  1. TRANEXAMIC ACID [Suspect]
     Active Substance: TRANEXAMIC ACID
     Indication: Haemorrhage
     Dosage: UNK
  2. METHYLPHENIDATE [Concomitant]
     Active Substance: METHYLPHENIDATE
     Indication: Attention deficit hyperactivity disorder
     Dosage: UNK (CONCERTA XL -36MG)
     Dates: start: 20250827
  3. MEFENAMIC ACID [Concomitant]
     Active Substance: MEFENAMIC ACID
     Indication: Adenomyosis
     Dosage: UNK
     Dates: start: 20241009
  4. LEVOTHYROXINE [Concomitant]
     Active Substance: LEVOTHYROXINE
     Indication: Autoimmune hypothyroidism
     Dosage: UNK
     Dates: start: 20210707

REACTIONS (6)
  - Heart rate decreased [Recovered/Resolved]
  - Pallor [Recovered/Resolved]
  - Nausea [Recovered/Resolved]
  - Fatigue [Recovering/Resolving]
  - Malaise [Unknown]
  - Asthenia [Unknown]

NARRATIVE: CASE EVENT DATE: 20250927
